FAERS Safety Report 9261942 (Version 4)
Quarter: 2014Q2

REPORT INFORMATION
  Report Type: Spontaneous
  Country: US (occurrence: US)
  Receive Date: 20130429
  Receipt Date: 20140625
  Transmission Date: 20141212
  Serious: No
  Sender: FDA-Public Use
  Company Number: US-009507513-1304USA015561

PATIENT
  Sex: Male
  Weight: 109.75 kg

DRUGS (4)
  1. PROPECIA [Suspect]
     Indication: ALOPECIA
     Dosage: 1 MG, UNK
     Route: 048
     Dates: start: 1998
  2. PROPECIA [Suspect]
     Dosage: 1 MG, UNK
     Route: 048
     Dates: start: 2004, end: 20100711
  3. PROSCAR [Suspect]
     Indication: BENIGN PROSTATIC HYPERPLASIA
     Dosage: 5 MG,1/2 TAB QHS
     Route: 048
     Dates: start: 20110414
  4. FINASTERIDE [Suspect]
     Indication: PRODUCT USED FOR UNKNOWN INDICATION
     Dosage: 5 MG, UNK
     Route: 048
     Dates: start: 20110416, end: 20110604

REACTIONS (20)
  - Secondary hypogonadism [Unknown]
  - Male genital atrophy [Unknown]
  - Anhedonia [Unknown]
  - Disturbance in attention [Unknown]
  - Anxiety [Not Recovered/Not Resolved]
  - Dyslipidaemia [Unknown]
  - Varicose vein [Unknown]
  - Benign prostatic hyperplasia [Unknown]
  - Hypertonic bladder [Unknown]
  - Nephrolithiasis [Unknown]
  - Nephrolithiasis [Unknown]
  - Nephrolithiasis [Unknown]
  - Presyncope [Unknown]
  - Wrong technique in drug usage process [Unknown]
  - Sexual dysfunction [Not Recovered/Not Resolved]
  - Gynaecomastia [Not Recovered/Not Resolved]
  - Erectile dysfunction [Not Recovered/Not Resolved]
  - Testicular pain [Unknown]
  - Depression [Not Recovered/Not Resolved]
  - Loss of libido [Unknown]
